FAERS Safety Report 8276962-1 (Version None)
Quarter: 2012Q2

REPORT INFORMATION
  Report Type: 
  Country: None (occurrence: None)
  Receive Date: 20120412
  Receipt Date: 20120403
  Transmission Date: 20120825
  Serious: Yes (Life-Threatening, Hospitalization)
  Sender: FDA-Public Use
  Company Number: FR-PFIZER INC-2011166942

PATIENT
  Age: 76 Year
  Sex: Female

DRUGS (8)
  1. BISOPROLOL [Suspect]
     Dosage: 25 MG, SINGLE
     Route: 048
     Dates: start: 20110606, end: 20110606
  2. CORDARONE [Suspect]
     Dosage: 100 MG, 1X/DAY
     Route: 048
     Dates: start: 20110401, end: 20110605
  3. XANAX [Suspect]
     Dosage: 10 MG, SINGLE
     Route: 048
     Dates: start: 20110606, end: 20110606
  4. IRBESARTAN [Concomitant]
  5. ZOLPIDEM TARTRATE [Suspect]
     Dosage: 70 MG, SINGLE
     Route: 048
     Dates: start: 20110606, end: 20110606
  6. CORDARONE [Suspect]
     Indication: ATRIAL FIBRILLATION
     Dosage: 200 MG, 1X/DAY
     Route: 048
     Dates: end: 20110401
  7. CORDARONE [Suspect]
     Dosage: 2 G, SINGLE
     Dates: start: 20110606, end: 20110606
  8. CORDARONE [Suspect]
     Dosage: UNK
     Dates: start: 20110616

REACTIONS (3)
  - HYPOTHYROIDISM [None]
  - MULTIPLE DRUG OVERDOSE INTENTIONAL [None]
  - SUICIDE ATTEMPT [None]
